FAERS Safety Report 24318118 (Version 2)
Quarter: 2024Q4

REPORT INFORMATION
  Report Type: Report from Study
  Country: US (occurrence: US)
  Receive Date: 20240913
  Receipt Date: 20241002
  Transmission Date: 20250114
  Serious: Yes (Other)
  Sender: MERCK
  Company Number: US-009507513-2407USA008618

PATIENT
  Sex: Female
  Weight: 37.642 kg

DRUGS (4)
  1. SOTATERCEPT [Suspect]
     Active Substance: SOTATERCEPT
     Indication: Pulmonary arterial hypertension
     Dosage: 0.2 MILLILITER, Q3W, STRENGTH: 45 MG
     Route: 058
     Dates: start: 202407
  2. WINREVAIR [Suspect]
     Active Substance: SOTATERCEPT-CSRK
     Indication: Pulmonary arterial hypertension
     Dosage: 0.5 MILLILITER, Q3W, STRENGTH: 45 MILLIGRAM
     Route: 058
     Dates: start: 2024
  3. WINREVAIR [Suspect]
     Active Substance: SOTATERCEPT-CSRK
     Indication: Pulmonary arterial hypertension
     Dosage: 0.2 MILLILITER, Q3W, STRENGHT: 45 MG
     Route: 058
     Dates: start: 2024
  4. IMODIUM [Concomitant]
     Active Substance: LOPERAMIDE HYDROCHLORIDE
     Dosage: UNK

REACTIONS (13)
  - Dyspnoea at rest [Unknown]
  - Hypotension [Unknown]
  - Diarrhoea [Recovered/Resolved]
  - Dyspnoea exertional [Unknown]
  - Contusion [Unknown]
  - Productive cough [Unknown]
  - Nausea [Unknown]
  - Oedema peripheral [Unknown]
  - Arthritis [Unknown]
  - Raynaud^s phenomenon [Unknown]
  - Vomiting [Unknown]
  - Decreased appetite [Unknown]
  - Cough [Unknown]

NARRATIVE: CASE EVENT DATE: 20240101
